FAERS Safety Report 7636934-4 (Version None)
Quarter: 2011Q3

REPORT INFORMATION
  Report Type: 
  Country: None (occurrence: None)
  Receive Date: 20110726
  Receipt Date: 20110712
  Transmission Date: 20111222
  Serious: Yes (Hospitalization)
  Sender: FDA-Public Use
  Company Number: SE-ENDO PHARMACEUTICALS INC.-FORT20110040

PATIENT
  Sex: Male

DRUGS (15)
  1. NOVOLOG [Concomitant]
     Dosage: UNKNOWN
     Route: 065
  2. TEGRETOL [Concomitant]
     Dosage: UNKNOWN
     Route: 065
  3. ASPIRIN [Concomitant]
     Dosage: UNKNOWN
     Route: 065
  4. LUNESTA [Concomitant]
     Dosage: UNKNOWN
     Route: 065
  5. ACETAMINOPHEN [Concomitant]
     Dosage: UNKNOWN
     Route: 065
  6. CELESTONE SOLUSPAN [Concomitant]
     Dosage: UNKNOWN
     Route: 065
  7. CALCIUM CARBONATE WITH VITAMIN D [Concomitant]
     Dosage: UNKNOWN
     Route: 065
  8. NEURONTIN [Concomitant]
     Dosage: UNKNOWN
     Route: 065
  9. ELAVIL [Concomitant]
     Dosage: UNKNOWN
     Route: 065
  10. ALDACTONE [Concomitant]
     Dosage: UNKNOWN
     Route: 065
  11. FORTESTA [Suspect]
     Indication: PRIMARY HYPOGONADISM
     Route: 061
     Dates: start: 20110428, end: 20110429
  12. ZOCOR [Concomitant]
     Dosage: UNKNOWN
     Route: 065
  13. LOPRESSOR [Concomitant]
     Dosage: UNKNOWN
     Route: 065
  14. LASIX [Concomitant]
     Dosage: UNKNOWN
     Route: 065
  15. LEVEMIR [Concomitant]
     Dosage: UNKNOWN
     Route: 065

REACTIONS (1)
  - GRAND MAL CONVULSION [None]
